FAERS Safety Report 5982165-3 (Version None)
Quarter: 2008Q4

REPORT INFORMATION
  Report Type: 
  Country: None (occurrence: None)
  Receive Date: 20081208
  Receipt Date: 20081128
  Transmission Date: 20090506
  Serious: Yes (Life-Threatening, Hospitalization)
  Sender: FDA-Public Use
  Company Number: GB-RANBAXY-2008RR-19660

PATIENT
  Age: 12 Year
  Sex: Female
  Weight: 45 kg

DRUGS (4)
  1. CLARITHROMYCIN [Suspect]
     Indication: MYCOPLASMA INFECTION
     Dosage: 250 MG, BID
     Route: 048
     Dates: start: 20081025, end: 20081027
  2. CHLORAL HYDRATE [Suspect]
     Indication: SEDATION
     Dosage: 15 MG/KG, PRN
     Route: 048
     Dates: start: 20081027, end: 20081027
  3. CEFALEXIN [Concomitant]
  4. CEFUROXIME [Concomitant]
     Indication: MYCOPLASMA INFECTION
     Dosage: 1.5 G, UNK
     Route: 042
     Dates: start: 20081025

REACTIONS (2)
  - COAGULOPATHY [None]
  - LIVER FUNCTION TEST ABNORMAL [None]
